FAERS Safety Report 22095883 (Version 1)
Quarter: 2023Q1

REPORT INFORMATION
  Report Type: Report from Study
  Country: US (occurrence: US)
  Receive Date: 20230314
  Receipt Date: 20230314
  Transmission Date: 20230417
  Serious: Yes (Other)
  Sender: FDA-Public Use
  Company Number: US-ABBVIE-4339317

PATIENT
  Sex: Female

DRUGS (9)
  1. RINVOQ [Suspect]
     Active Substance: UPADACITINIB
     Indication: Drug therapy
     Dosage: STRENGTH: 15 MG
     Route: 048
     Dates: start: 20221229
  2. HYDROXYCHLOROQUINE [Concomitant]
     Active Substance: HYDROXYCHLOROQUINE
     Indication: Product used for unknown indication
  3. PROPRANOLOL TAB 10MG [Concomitant]
     Indication: Product used for unknown indication
  4. LEFLUNOMIDE [Concomitant]
     Active Substance: LEFLUNOMIDE
     Indication: Product used for unknown indication
  5. FLUTICASONE [Concomitant]
     Active Substance: FLUTICASONE
     Indication: Product used for unknown indication
  6. METFORMIN [Concomitant]
     Active Substance: METFORMIN HYDROCHLORIDE
     Indication: Product used for unknown indication
  7. OXYCOD/APAP TAB 5-325MG [Concomitant]
     Indication: Product used for unknown indication
  8. INDOMETHACIN CAP 50MG [Concomitant]
     Indication: Product used for unknown indication
  9. LIDOCAINE CRE 3% [Concomitant]
     Indication: Product used for unknown indication

REACTIONS (1)
  - Surgery [Unknown]
